FAERS Safety Report 8297030-9 (Version None)
Quarter: 2012Q2

REPORT INFORMATION
  Report Type: 
  Country: None (occurrence: None)
  Receive Date: 20120413
  Receipt Date: 20120403
  Transmission Date: 20120825
  Serious: Yes (Hospitalization)
  Sender: FDA-Public Use
  Company Number: 2012000075

PATIENT
  Age: 44 Year
  Sex: Female

DRUGS (4)
  1. TOLVAPTAN (TOLVAPTAN) [Suspect]
     Indication: CONGENITAL CYSTIC KIDNEY DISEASE
     Dosage: ORAL
     Route: 048
     Dates: start: 20111012, end: 20120111
  2. ACEON [Suspect]
     Indication: HYPERTENSION
     Dosage: 4 MG, BID, ORAL 4 MG, QD, ORAL 10 MG, QD, ORAL
     Route: 048
     Dates: start: 20110501, end: 20120101
  3. ACEON [Suspect]
     Indication: HYPERTENSION
     Dosage: 4 MG, BID, ORAL 4 MG, QD, ORAL 10 MG, QD, ORAL
     Route: 048
     Dates: start: 20021001, end: 20110501
  4. ACEON [Suspect]
     Indication: HYPERTENSION
     Dosage: 4 MG, BID, ORAL 4 MG, QD, ORAL 10 MG, QD, ORAL
     Route: 048
     Dates: start: 20120101, end: 20120128

REACTIONS (5)
  - HOT FLUSH [None]
  - PAIN [None]
  - NAUSEA [None]
  - CYTOLYTIC HEPATITIS [None]
  - HEPATITIS CHOLESTATIC [None]
